FAERS Safety Report 6143926-3 (Version None)
Quarter: 2009Q2

REPORT INFORMATION
  Report Type: 
  Country: None (occurrence: None)
  Receive Date: 20090401
  Receipt Date: 20090305
  Transmission Date: 20091009
  Serious: Yes (Death)
  Sender: FDA-Public Use
  Company Number: DSA_33349_2009

PATIENT
  Age: 67 Year
  Sex: Male

DRUGS (2)
  1. VASOTEC [Suspect]
     Indication: CARDIAC FAILURE CONGESTIVE
     Dosage: (DF ORAL), (DF ORAL)
     Route: 048
     Dates: start: 19991104, end: 19991110
  2. VASOTEC [Suspect]
     Indication: CARDIAC FAILURE CONGESTIVE
     Dosage: (DF ORAL), (DF ORAL)
     Route: 048
     Dates: start: 19991110

REACTIONS (2)
  - SUDDEN DEATH [None]
  - VOMITING [None]
